FAERS Safety Report 6868949-8 (Version None)
Quarter: 2010Q3

REPORT INFORMATION
  Report Type: 
  Country: None (occurrence: None)
  Receive Date: 20100721
  Receipt Date: 20100721
  Transmission Date: 20110219
  Serious: Yes (Other)
  Sender: FDA-Public Use
  Company Number: None

PATIENT
  Age: 25 Year
  Sex: Female
  Weight: 122.4712 kg

DRUGS (1)
  1. ALLI (ORLISTAT) [Suspect]
     Indication: OVERWEIGHT
     Dosage: 1 CAPSULE PER MEAL 3 TIMES A DAY PO
     Route: 048
     Dates: start: 20100714, end: 20100720

REACTIONS (6)
  - ANXIETY [None]
  - CHEST DISCOMFORT [None]
  - DYSPNOEA [None]
  - INSOMNIA [None]
  - PRURITUS [None]
  - RASH [None]
